FAERS Safety Report 5032534-3 (Version None)
Quarter: 2006Q2

REPORT INFORMATION
  Report Type: 
  Country: None (occurrence: None)
  Receive Date: 20060620
  Receipt Date: 20060612
  Transmission Date: 20061013
  Serious: Yes (Death, Life-Threatening, Hospitalization, Congenital Anomaly)
  Sender: FDA-Public Use
  Company Number: FEI2006-0685

PATIENT

DRUGS (3)
  1. PARAGARD T380A (INTRAUTERINE CONTRACEPTIVES) [Suspect]
  2. PRENATAL VITAMINS (PRENATAL VITAMINS /01549301/) [Concomitant]
  3. DIET PILLS [Concomitant]

REACTIONS (8)
  - DEVICE BREAKAGE [None]
  - DRUG EXPOSURE DURING PREGNANCY [None]
  - EXOMPHALOS [None]
  - FOETAL GROWTH RETARDATION [None]
  - INTRA-UTERINE DEATH [None]
  - IUCD COMPLICATION [None]
  - PLACENTAL TRANSFUSION SYNDROME [None]
  - PREGNANCY WITH CONTRACEPTIVE DEVICE [None]
